FAERS Safety Report 8063614-6 (Version None)
Quarter: 2012Q1

REPORT INFORMATION
  Report Type: 
  Country: None (occurrence: None)
  Receive Date: 20120123
  Receipt Date: 20120116
  Transmission Date: 20120608
  Serious: No
  Sender: FDA-Public Use
  Company Number: US-B.I. PHARMACEUTICALS,INC./RIDGEFIELD-2012-BP-00816BP

PATIENT
  Sex: Female

DRUGS (23)
  1. EFFEXOR [Concomitant]
     Indication: DEPRESSION
     Dosage: 150 MG
  2. BUPROPION HYDROCHLORIDE [Concomitant]
     Indication: DEPRESSION
  3. HAIR SKIN AND NAIL VITAMIN [Concomitant]
     Indication: SUPPLEMENTATION THERAPY
  4. OSCAL [Concomitant]
     Indication: SUPPLEMENTATION THERAPY
  5. SYNTHROID [Concomitant]
     Indication: HYPOTHYROIDISM
     Dosage: 100 MCG
  6. MELOXICAM [Concomitant]
     Indication: BACK PAIN
     Dosage: 7.5 MG
  7. FISH OIL [Concomitant]
     Indication: SUPPLEMENTATION THERAPY
  8. MEGA 3 VITAMIN [Concomitant]
     Indication: SUPPLEMENTATION THERAPY
  9. SPIRIVA [Suspect]
     Indication: ASTHMA
  10. KLONOPIN [Concomitant]
     Indication: ANXIETY
     Dosage: 3 MG
     Dates: start: 19980101
  11. RESTORIL [Concomitant]
     Indication: SLEEP DISORDER
  12. ABILIFY [Concomitant]
     Indication: DEPRESSION
  13. VITAMIN B-12 [Concomitant]
     Indication: SUPPLEMENTATION THERAPY
  14. PRASTERONE [Concomitant]
     Indication: SUPPLEMENTATION THERAPY
  15. GABAPENTIN [Concomitant]
     Indication: BACK PAIN
     Dosage: 300 MG
  16. ASCORBIC ACID [Concomitant]
     Indication: SUPPLEMENTATION THERAPY
  17. TOPAMAX [Concomitant]
     Indication: CONVULSION
  18. VITAMIN E [Concomitant]
     Indication: SUPPLEMENTATION THERAPY
  19. SPIRIVA [Suspect]
     Indication: BRONCHITIS CHRONIC
     Route: 055
  20. ESTRODIOL [Concomitant]
     Indication: BLOOD OESTROGEN
     Dosage: 2 MG
  21. VITAMIN A [Concomitant]
     Indication: SUPPLEMENTATION THERAPY
  22. TOPAMAX [Concomitant]
     Indication: MIGRAINE
     Dosage: 600 MG
  23. NORFLEX [Concomitant]
     Indication: BACK PAIN
     Dosage: 60 ML
     Route: 030

REACTIONS (4)
  - VISION BLURRED [None]
  - GLOSSODYNIA [None]
  - TONGUE DISCOLOURATION [None]
  - SWOLLEN TONGUE [None]
